FAERS Safety Report 25970591 (Version 2)
Quarter: 2025Q4

REPORT INFORMATION
  Report Type: Report from Study
  Country: EU (occurrence: EU)
  Receive Date: 20251028
  Receipt Date: 20251201
  Transmission Date: 20260117
  Serious: Yes (Hospitalization)
  Sender: JOHNSON AND JOHNSON
  Company Number: EU-JNJFOC-20251031413

PATIENT
  Age: 66 Year
  Sex: Male
  Weight: 94 kg

DRUGS (4)
  1. SIMPONI [Suspect]
     Active Substance: GOLIMUMAB
     Indication: Colitis ulcerative
     Dosage: DATE OF MOST RECENT DOSE - 22-OCT-2025
     Route: 058
     Dates: start: 20191220
  2. PENTASA [Concomitant]
     Active Substance: MESALAMINE
     Indication: Product used for unknown indication
     Dates: start: 20191218
  3. CLAVERSAL FOAM [Concomitant]
     Indication: Product used for unknown indication
     Dates: start: 20190904, end: 2020
  4. FERPLEX [Concomitant]
     Indication: Iron deficiency
     Dates: start: 20190918, end: 20210507

REACTIONS (1)
  - Cellulitis [Recovered/Resolved]

NARRATIVE: CASE EVENT DATE: 20251022
